FAERS Safety Report 16966404 (Version 4)
Quarter: 2021Q4

REPORT INFORMATION
  Report Type: Spontaneous
  Country: US (occurrence: US)
  Receive Date: 20191028
  Receipt Date: 20211001
  Transmission Date: 20220304
  Serious: Yes (Other)
  Sender: FDA-Public Use
  Company Number: US-PFIZER INC-2019340038

PATIENT
  Age: 71 Year
  Sex: Female
  Weight: 59.87 kg

DRUGS (1)
  1. XALKORI [Suspect]
     Active Substance: CRIZOTINIB
     Indication: Lung neoplasm malignant
     Dosage: 250 MG, 2X/DAY (ONE CAPSULE IN MORNING AND ONE CAPSULE IN EVENING BY MOUTH)

REACTIONS (3)
  - Leukopenia [Unknown]
  - Depression [Unknown]
  - Peripheral swelling [Not Recovered/Not Resolved]

NARRATIVE: CASE EVENT DATE: 20210101
